FAERS Safety Report 19633905 (Version 1)
Quarter: 2021Q3

REPORT INFORMATION
  Report Type: Spontaneous
  Country: SE (occurrence: SE)
  Receive Date: 20210729
  Receipt Date: 20210729
  Transmission Date: 20211014
  Serious: Yes (Hospitalization)
  Sender: FDA-Public Use
  Company Number: SE-PFIZER INC-2021895700

PATIENT
  Age: 25 Year
  Sex: Female

DRUGS (2)
  1. VENLAFAXINE HCL [Suspect]
     Active Substance: VENLAFAXINE HYDROCHLORIDE
     Dosage: UNK
     Dates: start: 202106, end: 202106
  2. COCILLANA?ETYFIN [DRIMIA MARITIMA EXTRACT;ETHYLMORPHINE HYDROCHLORIDE; [Suspect]
     Active Substance: ETHYLMORPHINE HYDROCHLORIDE\HERBALS
     Dosage: UNK
     Dates: start: 202106, end: 202106

REACTIONS (5)
  - ECG P wave inverted [Recovering/Resolving]
  - Toxicity to various agents [Recovering/Resolving]
  - Presyncope [Recovering/Resolving]
  - Intentional self-injury [Recovering/Resolving]
  - Ventricular extrasystoles [Recovering/Resolving]

NARRATIVE: CASE EVENT DATE: 202106
